FAERS Safety Report 18420062 (Version 5)
Quarter: 2021Q2

REPORT INFORMATION
  Report Type: Report from Study
  Country: None (occurrence: CA)
  Receive Date: 20201023
  Receipt Date: 20210529
  Transmission Date: 20210717
  Serious: Yes (Other)
  Sender: FDA-Public Use
  Company Number: CA-ABBVIE-20K-028-3568597-00

PATIENT
  Age: 65 Year
  Sex: Female

DRUGS (4)
  1. RINVOQ [Suspect]
     Active Substance: UPADACITINIB
     Route: 048
  2. RINVOQ [Suspect]
     Active Substance: UPADACITINIB
     Indication: RHEUMATOID ARTHRITIS
     Route: 048
     Dates: start: 20200708
  3. RINVOQ [Suspect]
     Active Substance: UPADACITINIB
     Route: 048
  4. RINVOQ [Suspect]
     Active Substance: UPADACITINIB
     Route: 048
     Dates: start: 20201015, end: 2021

REACTIONS (16)
  - Feeling hot [Unknown]
  - Cystitis [Unknown]
  - Nephrolithiasis [Unknown]
  - Knee arthroplasty [Unknown]
  - Hip arthroplasty [Unknown]
  - Pain [Recovered/Resolved]
  - Kidney infection [Unknown]
  - Urinary tract infection [Unknown]
  - Fall [Unknown]
  - Joint swelling [Recovered/Resolved]
  - Dyspnoea [Unknown]
  - Medical device site injury [Unknown]
  - Spinal fracture [Unknown]
  - Arthropathy [Unknown]
  - Pain [Unknown]
  - Cough [Unknown]

NARRATIVE: CASE EVENT DATE: 2020
